FAERS Safety Report 11247859 (Version 12)
Quarter: 2019Q4

REPORT INFORMATION
  Report Type: Spontaneous
  Country: US (occurrence: US)
  Receive Date: 20150708
  Receipt Date: 20191030
  Transmission Date: 20200122
  Serious: Yes (Hospitalization, Other)
  Sender: FDA-Public Use
  Company Number: US-PFIZER INC-2015222839

PATIENT
  Age: 48 Year
  Sex: Female
  Weight: 99 kg

DRUGS (20)
  1. CLONAZEPAM. [Concomitant]
     Active Substance: CLONAZEPAM
     Dosage: UNK
  2. LYRICA [Suspect]
     Active Substance: PREGABALIN
     Dosage: 300 MG, 2X/DAY
     Route: 048
     Dates: start: 20190610
  3. DILANTIN [Concomitant]
     Active Substance: PHENYTOIN
     Dosage: UNK
     Route: 048
     Dates: start: 199801
  4. LYRICA [Suspect]
     Active Substance: PREGABALIN
     Dosage: 300 MG, 2X/DAY
     Route: 048
     Dates: start: 20170913
  5. ALBUTEROL. [Concomitant]
     Active Substance: ALBUTEROL
     Dosage: UNK
     Dates: start: 20150606
  6. CYTOTEC [Concomitant]
     Active Substance: MISOPROSTOL
     Dosage: UNK
  7. LYRICA [Suspect]
     Active Substance: PREGABALIN
     Indication: PAIN
     Dosage: 500 MG, 2X/DAY
     Route: 048
     Dates: start: 20150605, end: 20150605
  8. DILANTIN [Concomitant]
     Active Substance: PHENYTOIN
     Dosage: 100 MG, 2X/DAY
     Route: 048
  9. AZASAN [Concomitant]
     Active Substance: AZATHIOPRINE
     Dosage: 100 MG, DAILY
     Dates: start: 199902
  10. KLONOPIN [Concomitant]
     Active Substance: CLONAZEPAM
     Dosage: 4 MG, UNK
  11. LYRICA [Suspect]
     Active Substance: PREGABALIN
     Indication: FIBROMYALGIA
     Dosage: 300 MG, DAILY
     Route: 048
  12. LYRICA [Suspect]
     Active Substance: PREGABALIN
     Indication: PARAESTHESIA
     Dosage: 300 MG, 2X/DAY
     Route: 048
     Dates: start: 20160422
  13. DILANTIN [Concomitant]
     Active Substance: PHENYTOIN
     Indication: NEUROSARCOIDOSIS
     Dosage: 200 MG, 2X/DAY
     Route: 048
     Dates: start: 199801, end: 199801
  14. QUELAPIN [Concomitant]
     Dosage: UNK
     Dates: start: 20150606, end: 20150607
  15. PREDNISONE. [Concomitant]
     Active Substance: PREDNISONE
     Dosage: UNK
  16. LYRICA [Suspect]
     Active Substance: PREGABALIN
     Indication: HEADACHE
     Dosage: 300 MG, DAILY
     Route: 048
     Dates: start: 20150606
  17. LYRICA [Suspect]
     Active Substance: PREGABALIN
     Dosage: 300 MG, 2X/DAY
     Route: 048
     Dates: start: 20180730
  18. LYRICA [Suspect]
     Active Substance: PREGABALIN
     Dosage: 300 MG, 2X/DAY
     Route: 048
     Dates: start: 20170406, end: 2017
  19. LEVAQUIN [Concomitant]
     Active Substance: LEVOFLOXACIN
     Dosage: UNK
     Dates: start: 20150606, end: 20150615
  20. IMITREX [Concomitant]
     Active Substance: SUMATRIPTAN SUCCINATE
     Dosage: UNK

REACTIONS (5)
  - Prescribed overdose [Unknown]
  - Pneumonia [Recovered/Resolved]
  - Asthma [Recovered/Resolved]
  - Pain [Recovered/Resolved]
  - Blood potassium decreased [Recovered/Resolved]

NARRATIVE: CASE EVENT DATE: 20150602
